FAERS Safety Report 24000667 (Version 1)
Quarter: 2024Q2

REPORT INFORMATION
  Report Type: Spontaneous
  Country: US (occurrence: US)
  Receive Date: 20240621
  Receipt Date: 20240621
  Transmission Date: 20240715
  Serious: No
  Sender: FDA-Public Use
  Company Number: US-TEVA-VS-3208908

PATIENT
  Age: 68 Year
  Sex: Female

DRUGS (1)
  1. ESTRADIOL [Suspect]
     Active Substance: ESTRADIOL
     Indication: Vulvovaginal dryness
     Route: 067

REACTIONS (3)
  - Product solubility abnormal [Unknown]
  - Contraindication to medical treatment [Unknown]
  - Off label use [Unknown]
